FAERS Safety Report 10091011 (Version 1)
Quarter: 2014Q2

REPORT INFORMATION
  Report Type: Spontaneous
  Country: US (occurrence: US)
  Receive Date: 20140421
  Receipt Date: 20140421
  Transmission Date: 20141212
  Serious: No
  Sender: FDA-Public Use
  Company Number: US-009507513-1404USA009337

PATIENT
  Age: 7 Year
  Sex: Male

DRUGS (1)
  1. NOXAFIL [Suspect]
     Dosage: 200 MG, FOUR TIMES DAILY
     Route: 048
     Dates: start: 201403

REACTIONS (4)
  - Eating disorder [Unknown]
  - Drug level decreased [Unknown]
  - Drug administered to patient of inappropriate age [Unknown]
  - Off label use [Unknown]
